FAERS Safety Report 7189271-9 (Version None)
Quarter: 2010Q4

REPORT INFORMATION
  Report Type: 
  Country: None (occurrence: None)
  Receive Date: 20101222
  Receipt Date: 20100805
  Transmission Date: 20110411
  Serious: No
  Sender: FDA-Public Use
  Company Number: US-AMGEN-KDL429256

PATIENT

DRUGS (4)
  1. ENBREL [Suspect]
     Indication: PRODUCT USED FOR UNKNOWN INDICATION
     Dosage: 50 MG, QWK
     Route: 058
  2. MULTI-VITAMINS [Concomitant]
     Dosage: UNK UNK, UNK
  3. CALCIUM WITH VITAMIN D [Concomitant]
     Dosage: UNK UNK, UNK
  4. LEVOTHYROXINE SODIUM [Concomitant]
     Dosage: 88 A?G, UNK

REACTIONS (4)
  - COUGH [None]
  - INJECTION SITE ERYTHEMA [None]
  - INJECTION SITE RASH [None]
  - URINARY TRACT INFECTION [None]
